FAERS Safety Report 7924214-9 (Version None)
Quarter: 2011Q4

REPORT INFORMATION
  Report Type: 
  Country: None (occurrence: None)
  Receive Date: 20111117
  Receipt Date: 20110215
  Transmission Date: 20120403
  Serious: No
  Sender: FDA-Public Use
  Company Number: US-AMGEN-USASP2011007382

PATIENT
  Age: 39 Year
  Sex: Female

DRUGS (2)
  1. ENBREL [Suspect]
     Indication: RHEUMATOID ARTHRITIS
     Dosage: 50 MG, QWK
     Dates: start: 20000601
  2. ENBREL [Suspect]
     Indication: PSORIASIS

REACTIONS (10)
  - SINUSITIS [None]
  - NAUSEA [None]
  - DIARRHOEA [None]
  - STRESS [None]
  - PAIN IN EXTREMITY [None]
  - INFLUENZA [None]
  - PSORIASIS [None]
  - LIMB INJURY [None]
  - ABDOMINAL PAIN UPPER [None]
  - INJECTION SITE HAEMATOMA [None]
